FAERS Safety Report 4649850-7 (Version None)
Quarter: 2005Q2

REPORT INFORMATION
  Report Type: 
  Country: None (occurrence: None)
  Receive Date: 20050428
  Receipt Date: 20050419
  Transmission Date: 20051028
  Serious: Yes (Life-Threatening, Other)
  Sender: FDA-Public Use
  Company Number: 2005061621

PATIENT
  Age: 79 Year
  Sex: Female

DRUGS (1)
  1. CARDURA XL [Suspect]
     Indication: ILL-DEFINED DISORDER
     Dosage: (4 MG), ORAL
     Route: 048

REACTIONS (1)
  - SHOCK [None]
